FAERS Safety Report 11071069 (Version 4)
Quarter: 2016Q3

REPORT INFORMATION
  Report Type: Report from Study
  Country: BR (occurrence: BR)
  Receive Date: 20150428
  Receipt Date: 20160815
  Transmission Date: 20161109
  Serious: Yes (Hospitalization, Other)
  Sender: FDA-Public Use
  Company Number: BR-ROCHE-1569152

PATIENT
  Age: 52 Year
  Sex: Female
  Weight: 98 kg

DRUGS (14)
  1. XOLAIR [Suspect]
     Active Substance: OMALIZUMAB
     Route: 058
  2. CARDIZEM [Suspect]
     Active Substance: DILTIAZEM HYDROCHLORIDE
     Indication: PRODUCT USED FOR UNKNOWN INDICATION
     Route: 065
     Dates: start: 20150327
  3. ONBRIZE [Concomitant]
     Active Substance: INDACATEROL MALEATE
     Route: 065
  4. RIVOTRIL [Concomitant]
     Active Substance: CLONAZEPAM
     Route: 048
  5. PREDSIM [Concomitant]
     Active Substance: PREDNISOLONE
     Route: 065
  6. METFORMIN [Concomitant]
     Active Substance: METFORMIN HYDROCHLORIDE
     Dosage: EXTENDED RELEASE
     Route: 048
  7. VASTAREL [Concomitant]
     Active Substance: TRIMETAZIDINE DIHYDROCHLORIDE
  8. AZUKON [Concomitant]
     Active Substance: GLICLAZIDE
     Route: 065
  9. XOLAIR [Suspect]
     Active Substance: OMALIZUMAB
     Route: 058
     Dates: start: 20150327
  10. BUSONID [Concomitant]
     Active Substance: BUDESONIDE
  11. XOLAIR [Suspect]
     Active Substance: OMALIZUMAB
     Route: 058
     Dates: start: 20101001
  12. INDAPEN [Concomitant]
     Active Substance: INDAPAMIDE
     Dosage: SLOW RELEASE
     Route: 065
  13. XOLAIR [Suspect]
     Active Substance: OMALIZUMAB
     Indication: ASTHMA
     Route: 058
     Dates: start: 20101001
  14. CARVEDILOL. [Concomitant]
     Active Substance: CARVEDILOL
     Route: 048

REACTIONS (26)
  - Gastrointestinal infection [Recovering/Resolving]
  - Heart rate increased [Recovering/Resolving]
  - Blood potassium decreased [Unknown]
  - Fatigue [Unknown]
  - Lung disorder [Unknown]
  - Blood glucose abnormal [Recovering/Resolving]
  - Dizziness [Recovering/Resolving]
  - Malaise [Recovering/Resolving]
  - Weight increased [Unknown]
  - Depression [Unknown]
  - Urinary tract infection [Recovered/Resolved]
  - Vision blurred [Recovering/Resolving]
  - Asthenia [Recovered/Resolved]
  - Emotional disorder [Unknown]
  - Dysstasia [Recovering/Resolving]
  - Rash [Recovering/Resolving]
  - Chronic obstructive pulmonary disease [Unknown]
  - Anxiety [Unknown]
  - Dyspnoea [Not Recovered/Not Resolved]
  - Gait disturbance [Recovering/Resolving]
  - Pallor [Recovering/Resolving]
  - Diarrhoea [Recovering/Resolving]
  - Influenza [Recovering/Resolving]
  - Discomfort [Recovering/Resolving]
  - Chest pain [Unknown]
  - Weight decreased [Unknown]

NARRATIVE: CASE EVENT DATE: 2012
